FAERS Safety Report 17752615 (Version 1)
Quarter: 2020Q2

REPORT INFORMATION
  Report Type: Spontaneous
  Country: US (occurrence: US)
  Receive Date: 20200506
  Receipt Date: 20200506
  Transmission Date: 20200714
  Serious: No
  Sender: FDA-Public Use
  Company Number: US-AKRON, INC.-2083555

PATIENT
  Sex: Male

DRUGS (1)
  1. EYE ITCH RELIEF [Suspect]
     Active Substance: KETOTIFEN FUMARATE
     Route: 047

REACTIONS (1)
  - Therapeutic product effect incomplete [Unknown]
